FAERS Safety Report 5918440-8 (Version None)
Quarter: 2008Q4

REPORT INFORMATION
  Report Type: 
  Country: None (occurrence: None)
  Receive Date: 20081014
  Receipt Date: 20081014
  Transmission Date: 20090506
  Serious: Yes (Death)
  Sender: FDA-Public Use
  Company Number: None

PATIENT
  Age: 6 Month
  Sex: Male
  Weight: 7.38 kg

DRUGS (5)
  1. INH (ISONIAZID) /PLACEBO [Suspect]
     Indication: ANTIBIOTIC PROPHYLAXIS
     Dosage: 100 MILLIGRAMS DAILY ORALLY
     Route: 048
     Dates: start: 20060803, end: 20061025
  2. BACTRIM [Suspect]
     Indication: INFECTION PROPHYLAXIS
     Dosage: 5 MILLILITERS DAILY ORALLY
     Route: 048
     Dates: start: 20060803, end: 20061025
  3. KALETRA [Concomitant]
  4. LAMIVUDINE [Concomitant]
  5. ZIDOVUDINE [Concomitant]

REACTIONS (1)
  - DEATH [None]
